FAERS Safety Report 5246705-4 (Version None)
Quarter: 2007Q1

REPORT INFORMATION
  Report Type: 
  Country: None (occurrence: None)
  Receive Date: 20070226
  Receipt Date: 20070214
  Transmission Date: 20070707
  Serious: Yes (Hospitalization)
  Sender: FDA-Public Use
  Company Number: FR-BRISTOL-MYERS SQUIBB COMPANY-13682802

PATIENT
  Age: 42 Year
  Sex: Male

DRUGS (12)
  1. VIDEX EC [Suspect]
     Indication: HIV INFECTION
     Route: 048
     Dates: start: 20060131, end: 20061219
  2. NORVIR [Suspect]
     Route: 048
     Dates: start: 20030915, end: 20061219
  3. EPIVIR [Suspect]
     Route: 048
     Dates: start: 20030915, end: 20061219
  4. FUZEON [Suspect]
     Route: 048
     Dates: start: 20030915, end: 20061219
  5. AZADOSE [Suspect]
     Route: 048
     Dates: end: 20061219
  6. DARUNAVIR [Suspect]
     Route: 048
     Dates: start: 20060131, end: 20061219
  7. LASIX [Concomitant]
     Dates: start: 20061128
  8. CORTANCYL [Concomitant]
     Dates: start: 20060301
  9. VALACYCLOVIR HCL [Concomitant]
     Dates: start: 20060901
  10. LYRICA [Concomitant]
     Dates: start: 20061204, end: 20061220
  11. TRAMADOL HCL [Concomitant]
     Dates: end: 20061201
  12. RIVOTRIL [Concomitant]
     Dates: end: 20061201

REACTIONS (8)
  - CHOLESTASIS [None]
  - CYTOLYTIC HEPATITIS [None]
  - DYSPNOEA [None]
  - HEPATITIS [None]
  - LACTIC ACIDOSIS [None]
  - LIPASE INCREASED [None]
  - OCULAR ICTERUS [None]
  - PANCREATITIS [None]
